FAERS Safety Report 5331065-0 (Version None)
Quarter: 2007Q2

REPORT INFORMATION
  Report Type: 
  Country: None (occurrence: None)
  Receive Date: 20070516
  Receipt Date: 20070502
  Transmission Date: 20071010
  Serious: Yes (Hospitalization)
  Sender: FDA-Public Use
  Company Number: 07CA000887

PATIENT
  Age: 65 Year
  Sex: Male

DRUGS (2)
  1. LITHIUM CARBONATE [Suspect]
     Indication: DRUG USE FOR UNKNOWN INDICATION
     Dosage: 300 MG
  2. HYDROCHLOROTHIAZIDE [Concomitant]

REACTIONS (12)
  - ANION GAP DECREASED [None]
  - BLOOD BICARBONATE INCREASED [None]
  - BLOOD CALCIUM INCREASED [None]
  - DEPRESSED LEVEL OF CONSCIOUSNESS [None]
  - DYSARTHRIA [None]
  - HAEMODIALYSIS [None]
  - HEART RATE INCREASED [None]
  - OSMOLAR GAP ABNORMAL [None]
  - OVERDOSE [None]
  - RESPIRATORY RATE INCREASED [None]
  - THERAPEUTIC AGENT TOXICITY [None]
  - URINE OUTPUT INCREASED [None]
